FAERS Safety Report 6793114-2 (Version None)
Quarter: 2010Q2

REPORT INFORMATION
  Report Type: 
  Country: None (occurrence: None)
  Receive Date: 20100624
  Receipt Date: 20090608
  Transmission Date: 20101027
  Serious: Yes (Death)
  Sender: FDA-Public Use
  Company Number: US-MYLANLABS-2009S1008703

PATIENT
  Age: 31 Year
  Sex: Male
  Weight: 78.5 kg

DRUGS (12)
  1. CLOZAPINE [Suspect]
     Indication: SCHIZOPHRENIA
     Route: 048
     Dates: start: 20090331, end: 20090409
  2. CLOZAPINE [Suspect]
     Route: 048
     Dates: start: 20090410, end: 20090415
  3. CLOZAPINE [Suspect]
     Route: 048
     Dates: start: 20090410, end: 20090415
  4. ABILIFY [Concomitant]
     Indication: SCHIZOPHRENIA
     Dates: start: 20090301, end: 20090415
  5. ANTIHYPERTENSIVES [Concomitant]
     Indication: HYPERTENSION
     Dates: end: 20090101
  6. OLANZAPINE [Concomitant]
     Dates: start: 20090507
  7. NICOTINE [Concomitant]
     Dates: start: 20090507
  8. HALDOL [Concomitant]
     Dates: start: 20090507
  9. HALDOL [Concomitant]
     Dosage: PO/IM
     Dates: start: 20090507
  10. BENADRYL [Concomitant]
     Dosage: PO/IM
     Dates: start: 20090507
  11. DIVALPROEX SODIUM [Concomitant]
     Dates: start: 20090301
  12. LISINOPRIL [Concomitant]
     Dates: start: 20090301

REACTIONS (1)
  - DEATH [None]
